FAERS Safety Report 7960179-1 (Version None)
Quarter: 2011Q4

REPORT INFORMATION
  Report Type: 
  Country: None (occurrence: None)
  Receive Date: 20111206
  Receipt Date: 20111201
  Transmission Date: 20120403
  Serious: Yes (Death)
  Sender: FDA-Public Use
  Company Number: PHHY2011BR105432

PATIENT
  Sex: Female

DRUGS (1)
  1. EXELON [Suspect]
     Indication: DEMENTIA ALZHEIMER'S TYPE
     Dosage: 1 DF,PER DAY
     Route: 062
     Dates: start: 20100301

REACTIONS (3)
  - CARDIAC FAILURE [None]
  - HYPERSENSITIVITY [None]
  - RESPIRATORY FAILURE [None]
